FAERS Safety Report 8909274 (Version 2)
Quarter: 2013Q1

REPORT INFORMATION
  Report Type: Spontaneous
  Country: JP (occurrence: None)
  Receive Date: 20121107
  Receipt Date: 20121210
  Transmission Date: 20140127
  Serious: Yes (Hospitalization, Other)
  Sender: FDA-Public Use
  Company Number: DSJ-2012-19767

PATIENT
  Age: 33 Year
  Sex: Female
  Weight: 79.4 kg

DRUGS (9)
  1. OLMETEC [Suspect]
     Indication: PRODUCT USED FOR UNKNOWN INDICATION
     Dosage: (20 MG,2 IN 1 D)
     Route: 050
     Dates: start: 20111017, end: 20111226
  2. CALBLOCK [Suspect]
     Indication: PRODUCT USED FOR UNKNOWN INDICATION
     Route: 050
     Dates: start: 20111017, end: 20111226
  3. AVAPRO (IRBESARTAN) [Suspect]
     Indication: INDUCTION OF ANAESTHESIA
     Route: 050
     Dates: start: 20111023, end: 20111226
  4. CARDENALIN [Suspect]
     Indication: MAINTENANCE OF ANAESTHESIA
     Dosage: (2 MG,2 IN 1 D)
     Route: 050
     Dates: start: 20111109, end: 20111226
  5. TAKEPRON OD (LANSOPRAZOLE) (LANSOPRAZOLE) [Concomitant]
     Indication: MAINTENANCE OF ANAESTHESIA
  6. DIGOXIN (DIGOXIN) (TABLET) (DIGOXIN) [Concomitant]
  7. LASIX (FUROSEMIDE) (GRANULES) (FUROSEMIDE) [Concomitant]
  8. ALEVIATIN (PHENYTOIN) (ORAL POWDER) (PHENYTOIN) [Concomitant]
  9. ULCERLMIN (SUCRALFATE) (SOLUTION) (SUCRALFATE) [Concomitant]

REACTIONS (4)
  - Hypotension [None]
  - Tachycardia [None]
  - Oxygen saturation decreased [None]
  - Drug interaction [None]
